FAERS Safety Report 18990447 (Version 2)
Quarter: 2021Q2

REPORT INFORMATION
  Report Type: Report from Study
  Country: BR (occurrence: BR)
  Receive Date: 20210310
  Receipt Date: 20210514
  Transmission Date: 20210717
  Serious: Yes (Hospitalization)
  Sender: FDA-Public Use
  Company Number: BR-BIOGEN-2021BI00987195

PATIENT
  Age: 43 Year
  Sex: Female
  Weight: 84 kg

DRUGS (4)
  1. CITONEURIN (THIAMINE NITRATE, PYRIDOXINE HYDROCHLORIDE, CYANOCOBALA... [Concomitant]
     Indication: SUPPLEMENTATION THERAPY
     Route: 048
     Dates: start: 2020
  2. VITAMIN D [Concomitant]
     Active Substance: VITAMIN D NOS
     Indication: SUPPLEMENTATION THERAPY
     Route: 048
     Dates: start: 2018
  3. NEUTROFER [Concomitant]
     Active Substance: FERROUS BISGLYCINATE
     Indication: METABOLIC SURGERY
     Route: 048
     Dates: start: 2020
  4. TYSABRI [Suspect]
     Active Substance: NATALIZUMAB
     Indication: MULTIPLE SCLEROSIS
     Route: 042
     Dates: start: 201704

REACTIONS (2)
  - Multiple sclerosis relapse [Not Recovered/Not Resolved]
  - Emotional disorder [Unknown]

NARRATIVE: CASE EVENT DATE: 20210205
